FAERS Safety Report 25648845 (Version 2)
Quarter: 2025Q3

REPORT INFORMATION
  Report Type: Other
  Country: CA (occurrence: CA)
  Receive Date: 20250806
  Receipt Date: 20250812
  Transmission Date: 20251021
  Serious: Yes (Death, Hospitalization, Other)
  Sender: APOTEX
  Company Number: CA-PGRTD-E2B_07051751

PATIENT
  Age: 76 Year
  Sex: Female

DRUGS (3)
  1. AMBRISENTAN [Suspect]
     Active Substance: AMBRISENTAN
     Indication: Pulmonary arterial hypertension
     Route: 048
  2. ZAROXOLYN [Suspect]
     Active Substance: METOLAZONE
     Indication: Product used for unknown indication
     Route: 065
  3. FUROSEMIDE [Concomitant]
     Active Substance: FUROSEMIDE
     Indication: Product used for unknown indication
     Route: 065

REACTIONS (11)
  - Rib fracture [Fatal]
  - Asthma [Fatal]
  - Diarrhoea [Fatal]
  - Pneumonia [Fatal]
  - Hospitalisation [Fatal]
  - Constipation [Fatal]
  - Drug interaction [Fatal]
  - Depression [Fatal]
  - Somnolence [Fatal]
  - Peripheral swelling [Fatal]
  - Death [Fatal]
